FAERS Safety Report 18531391 (Version 3)
Quarter: 2021Q1

REPORT INFORMATION
  Report Type: Report from Study
  Country: None (occurrence: US)
  Receive Date: 20201122
  Receipt Date: 20210310
  Transmission Date: 20210419
  Serious: Yes (Hospitalization)
  Sender: FDA-Public Use
  Company Number: US-ABBVIE-20K-163-3655023-00

PATIENT
  Sex: Male
  Weight: 70.37 kg

DRUGS (1)
  1. CREON [Suspect]
     Active Substance: PANCRELIPASE AMYLASE\PANCRELIPASE LIPASE\PANCRELIPASE PROTEASE
     Indication: PANCREATIC FAILURE
     Dosage: 16 CAPSULES PER DAY?3 CAPSULES WITH EACH MEAL AND TWO CAPSULES WITH SNACKSS
     Route: 048
     Dates: start: 2008

REACTIONS (3)
  - Malaise [Unknown]
  - Diabetic complication [Unknown]
  - Steatorrhoea [Unknown]

NARRATIVE: CASE EVENT DATE: 2008
